FAERS Safety Report 9194036 (Version 1)
Quarter: 2013Q1

REPORT INFORMATION
  Report Type: Spontaneous
  Country: US (occurrence: US)
  Receive Date: 20130327
  Receipt Date: 20130327
  Transmission Date: 20140127
  Serious: No
  Sender: FDA-Public Use
  Company Number: US-ASTRAZENECA-2013SE16811

PATIENT
  Sex: Female
  Weight: 56.2 kg

DRUGS (3)
  1. CRESTOR [Suspect]
     Route: 048
     Dates: start: 2006
  2. LIPITOR [Suspect]
     Route: 065
     Dates: start: 2004, end: 2006
  3. SYNTHROID [Concomitant]

REACTIONS (4)
  - Pain [Unknown]
  - Blood glucose increased [Unknown]
  - Glycosylated haemoglobin increased [Unknown]
  - Myalgia [Unknown]
